FAERS Safety Report 9980044 (Version 1)
Quarter: 2014Q1

REPORT INFORMATION
  Report Type: Report from Study
  Country: US (occurrence: US)
  Receive Date: 20140307
  Receipt Date: 20140307
  Transmission Date: 20141002
  Serious: No
  Sender: FDA-Public Use
  Company Number: US-ABBVIE-13P-163-1175583-00

PATIENT
  Age: 44 Year
  Sex: Male

DRUGS (7)
  1. HUMIRA [Suspect]
     Indication: RHEUMATOID ARTHRITIS
     Dates: start: 201303, end: 201308
  2. HUMIRA [Suspect]
     Dates: start: 201308
  3. METHOTREXATE [Concomitant]
     Indication: RHEUMATOID ARTHRITIS
     Dosage: EIGHT PILLS ONCE A WEEK
  4. FOLIC ACID [Concomitant]
     Indication: PRODUCT USED FOR UNKNOWN INDICATION
  5. EFFEXOR [Concomitant]
     Indication: ANXIETY
  6. CYMBALTA [Concomitant]
     Indication: DEPRESSION
  7. NAPROSYN [Concomitant]
     Indication: ARTHRALGIA

REACTIONS (2)
  - Arthralgia [Recovering/Resolving]
  - Drug effect decreased [Unknown]
